FAERS Safety Report 14205429 (Version 2)
Quarter: 2017Q4

REPORT INFORMATION
  Report Type: Spontaneous
  Country: US (occurrence: US)
  Receive Date: 20171120
  Receipt Date: 20171121
  Transmission Date: 20180321
  Serious: Yes (Other)
  Sender: FDA-Public Use
  Company Number: US-PFIZER INC-2017493275

PATIENT
  Age: 39 Year
  Sex: Female
  Weight: 64 kg

DRUGS (6)
  1. LIDOCAINE. [Concomitant]
     Active Substance: LIDOCAINE
     Dosage: 100 MG, UNK
     Route: 042
  2. ROCURONIUM BROMIDE. [Suspect]
     Active Substance: ROCURONIUM BROMIDE
     Dosage: 5 MG, UNK (0.08 MG/KG)
     Route: 042
  3. MIDAZOLAM [Concomitant]
     Active Substance: MIDAZOLAM HYDROCHLORIDE
     Dosage: 2 MG, UNK
     Route: 042
  4. FOLATE [Concomitant]
     Active Substance: FOLATE SODIUM
     Dosage: UNK
  5. ROCURONIUM BROMIDE. [Suspect]
     Active Substance: ROCURONIUM BROMIDE
     Dosage: 5 MG, UNK (SECOND DOSE)
     Route: 042
  6. MULTIVITAMINUM [Concomitant]
     Dosage: UNK

REACTIONS (4)
  - Medication error [Unknown]
  - Communication disorder [Recovering/Resolving]
  - Dyspnoea [Recovering/Resolving]
  - Therapeutic response unexpected [Recovering/Resolving]
